FAERS Safety Report 6405958-7 (Version None)
Quarter: 2009Q4

REPORT INFORMATION
  Report Type: 
  Country: None (occurrence: None)
  Receive Date: 20091016
  Receipt Date: 20091016
  Transmission Date: 20100525
  Serious: Yes (Other)
  Sender: FDA-Public Use
  Company Number: None

PATIENT
  Age: 24 Year
  Sex: Male
  Weight: 98.8842 kg

DRUGS (6)
  1. QUETIAPINE XR ASTRAZENECA [Suspect]
     Indication: BIPOLAR II DISORDER
     Dosage: 200 MG IGD PO
     Route: 048
     Dates: start: 20090909, end: 20091004
  2. CIPRO [Concomitant]
  3. DOXYCLIN [Concomitant]
  4. METRONIDAZOLE [Concomitant]
  5. VITAMIN E (VITAMIN SUPPLEMENT) [Concomitant]
  6. LIACIN UNKNOWN (VITAMIN SUPPLEMENT) [Concomitant]

REACTIONS (3)
  - DEHYDRATION [None]
  - HYPOPHAGIA [None]
  - SYNCOPE [None]
